FAERS Safety Report 15003780 (Version 2)
Quarter: 2018Q3

REPORT INFORMATION
  Report Type: Report from Study
  Country: DE (occurrence: DE)
  Receive Date: 20180613
  Receipt Date: 20180912
  Transmission Date: 20181010
  Serious: Yes (Hospitalization, Other)
  Sender: FDA-Public Use
  Company Number: DE-TEVA-389198GER

PATIENT
  Sex: Male

DRUGS (14)
  1. PEGFILGRASTIM [Suspect]
     Active Substance: PEGFILGRASTIM
     Dosage: 6 MILLIGRAM DAILY;
     Route: 058
     Dates: start: 20121031, end: 20121031
  2. PREDNISOLONE. [Suspect]
     Active Substance: PREDNISOLONE
     Indication: B-CELL LYMPHOMA
     Dosage: 100 MILLIGRAM DAILY;
     Route: 048
     Dates: start: 20130206, end: 20130210
  3. DOXORUBICIN [Suspect]
     Active Substance: DOXORUBICIN
     Indication: B-CELL LYMPHOMA
     Dosage: 93 MILLIGRAM DAILY;
     Route: 042
     Dates: start: 20130206, end: 20130206
  4. CYCLOPHOSPHAMIDE. [Suspect]
     Active Substance: CYCLOPHOSPHAMIDE
     Indication: B-CELL LYMPHOMA
     Dosage: 1046 MILLIGRAM DAILY;
     Route: 042
     Dates: start: 20130206, end: 20130206
  5. INSULIN GLARGIN [Concomitant]
     Active Substance: INSULIN GLARGINE
     Indication: DIABETES MELLITUS
     Dosage: 10 IU (INTERNATIONAL UNIT) DAILY;
     Route: 058
  6. VINCRISTINE [Suspect]
     Active Substance: VINCRISTINE
     Indication: B-CELL LYMPHOMA
     Dosage: 2 MILLIGRAM DAILY;
     Route: 042
     Dates: start: 20130206, end: 20130206
  7. RITUXIMAB. [Suspect]
     Active Substance: RITUXIMAB
     Indication: B-CELL LYMPHOMA
     Dosage: 697.5 MILLIGRAM DAILY;
     Route: 042
     Dates: start: 20130205, end: 20130205
  8. CYCLOPHOSPHAMIDE. [Suspect]
     Active Substance: CYCLOPHOSPHAMIDE
     Dosage: 1550 MILLIGRAM DAILY;
     Route: 042
     Dates: start: 20121228, end: 20121228
  9. PREDNISOLONE. [Suspect]
     Active Substance: PREDNISOLONE
     Dosage: 100 MILLIGRAM DAILY;
     Route: 048
     Dates: start: 20130201
  10. RITUXIMAB. [Suspect]
     Active Substance: RITUXIMAB
     Dosage: 770 MILLIGRAM DAILY;
     Route: 042
     Dates: start: 20121227, end: 20121227
  11. ASPIRIN. [Concomitant]
     Active Substance: ASPIRIN
     Dosage: 100 MILLIGRAM DAILY;
     Route: 048
     Dates: start: 2013
  12. CEFUROXIM [Concomitant]
     Active Substance: CEFUROXIME
     Dosage: 2000 MILLIGRAM DAILY;
     Route: 048
     Dates: start: 20130207
  13. DOXORUBICIN [Suspect]
     Active Substance: DOXORUBICIN
     Dosage: 100 MILLIGRAM DAILY;
     Route: 042
     Dates: start: 20121228, end: 20121228
  14. PEGFILGRASTIM [Suspect]
     Active Substance: PEGFILGRASTIM
     Indication: B-CELL LYMPHOMA
     Dosage: 6 MILLIGRAM DAILY;
     Route: 058
     Dates: start: 20130211

REACTIONS (5)
  - Febrile neutropenia [Unknown]
  - Bronchitis [Recovered/Resolved]
  - Pyrexia [Recovered/Resolved]
  - Arrhythmia [Unknown]
  - Leukopenia [Unknown]

NARRATIVE: CASE EVENT DATE: 20130208
